FAERS Safety Report 4840749-X (Version None)
Quarter: 2005Q4

REPORT INFORMATION
  Report Type: 
  Country: None (occurrence: None)
  Receive Date: 20051027
  Receipt Date: 20041230
  Transmission Date: 20060501
  Serious: Yes (Other)
  Sender: FDA-Public Use
  Company Number: HQWYE204716JUL04

PATIENT
  Age: 66 Year
  Sex: Female
  Weight: 63.56 kg

DRUGS (3)
  1. PREMARIN [Suspect]
     Indication: VULVOVAGINAL DRYNESS
     Dates: start: 19920101, end: 20000101
  2. MEDROXYPROGESTERONE [Suspect]
     Indication: VULVOVAGINAL DRYNESS
     Dates: start: 19920101, end: 20000101
  3. PREMPRO [Suspect]
     Indication: VULVOVAGINAL DRYNESS
     Dates: start: 19920101, end: 20000101

REACTIONS (1)
  - OVARIAN CANCER [None]
